FAERS Safety Report 11805233 (Version 2)
Quarter: 2016Q1

REPORT INFORMATION
  Report Type: Other
  Country: IT (occurrence: IT)
  Receive Date: 20151206
  Receipt Date: 20160201
  Transmission Date: 20160525
  Serious: Yes (Hospitalization)
  Sender: FDA-Public Use
  Company Number: IT-MYLANLABS-2015M1042207

PATIENT

DRUGS (4)
  1. ALPRAZOLAM. [Suspect]
     Active Substance: ALPRAZOLAM
     Indication: PRODUCT USED FOR UNKNOWN INDICATION
     Dosage: 1 BOTTLE
  2. ENTACT [Suspect]
     Active Substance: ESCITALOPRAM OXALATE
     Indication: PRODUCT USED FOR UNKNOWN INDICATION
     Dosage: 1 BOTTLE
  3. CARDIOASPIRIN [Suspect]
     Active Substance: ASPIRIN
     Indication: PRODUCT USED FOR UNKNOWN INDICATION
     Dosage: UNK
  4. TRIATEC                            /00885601/ [Suspect]
     Active Substance: RAMIPRIL
     Indication: PRODUCT USED FOR UNKNOWN INDICATION
     Dosage: UNK

REACTIONS (6)
  - Overdose [Unknown]
  - Sopor [Recovering/Resolving]
  - Fall [Unknown]
  - Drug abuse [Recovering/Resolving]
  - Head injury [Unknown]
  - Disorientation [Recovering/Resolving]

NARRATIVE: CASE EVENT DATE: 20150923
